FAERS Safety Report 16929578 (Version 2)
Quarter: 2019Q4

REPORT INFORMATION
  Report Type: Spontaneous
  Country: US (occurrence: US)
  Receive Date: 20191017
  Receipt Date: 20191126
  Transmission Date: 20200122
  Serious: No
  Sender: FDA-Public Use
  Company Number: US-JNJFOC-20191014552

PATIENT
  Sex: Male

DRUGS (1)
  1. SPRAVATO [Suspect]
     Active Substance: ESKETAMINE
     Indication: DEPRESSION
     Dates: start: 20190926

REACTIONS (6)
  - Blood pressure increased [Unknown]
  - Drug ineffective [Unknown]
  - Dizziness [Unknown]
  - Expired product administered [Unknown]
  - Fear [Unknown]
  - Morbid thoughts [Unknown]

NARRATIVE: CASE EVENT DATE: 20191003
